FAERS Safety Report 6519796-8 (Version None)
Quarter: 2009Q4

REPORT INFORMATION
  Report Type: 
  Country: None (occurrence: None)
  Receive Date: 20091228
  Receipt Date: 20091228
  Transmission Date: 20100525
  Serious: Yes (Other)
  Sender: FDA-Public Use
  Company Number: None

PATIENT
  Sex: Female
  Weight: 78.9259 kg

DRUGS (1)
  1. PRISTIQ [Suspect]
     Indication: DEPRESSION
     Dates: start: 20090302, end: 20091017

REACTIONS (4)
  - BALANCE DISORDER [None]
  - DISCOMFORT [None]
  - EYE DISORDER [None]
  - MIGRAINE [None]
